FAERS Safety Report 22114761 (Version 1)
Quarter: 2023Q1

REPORT INFORMATION
  Report Type: Spontaneous
  Country: US (occurrence: US)
  Receive Date: 20230320
  Receipt Date: 20230320
  Transmission Date: 20230417
  Serious: Yes (Hospitalization)
  Sender: FDA-Public Use
  Company Number: US-PFIZER INC-PV202300048629

PATIENT
  Age: 59 Year
  Sex: Female

DRUGS (5)
  1. DOXORUBICIN HYDROCHLORIDE [Suspect]
     Active Substance: DOXORUBICIN HYDROCHLORIDE
     Indication: T-cell chronic lymphocytic leukaemia
     Dosage: UNK, CYCLIC, ONE CYCLE
     Dates: start: 201804
  2. VINCRISTINE SULFATE [Suspect]
     Active Substance: VINCRISTINE SULFATE
     Indication: T-cell chronic lymphocytic leukaemia
     Dosage: UNK, CYCLIC, ONE CYCLE
     Dates: start: 201804
  3. CYCLOPHOSPHAMIDE [Suspect]
     Active Substance: CYCLOPHOSPHAMIDE
     Indication: T-cell chronic lymphocytic leukaemia
     Dosage: UNK, CYCLIC, ONE CYCLE
     Dates: start: 201804
  4. PREDNISONE [Suspect]
     Active Substance: PREDNISONE
     Indication: T-cell chronic lymphocytic leukaemia
     Dosage: UNK, CYCLIC, ONE CYCLE
     Dates: start: 201804
  5. ALEMTUZUMAB [Concomitant]
     Active Substance: ALEMTUZUMAB
     Indication: T-cell prolymphocytic leukaemia
     Dosage: UNK, UNSPECIFIED DOSE
     Route: 058

REACTIONS (1)
  - Small intestinal obstruction [Unknown]
